FAERS Safety Report 9666408 (Version 3)
Quarter: 2014Q2

REPORT INFORMATION
  Report Type: Spontaneous
  Country: US (occurrence: US)
  Receive Date: 20131104
  Receipt Date: 20140423
  Transmission Date: 20141212
  Serious: No
  Sender: FDA-Public Use
  Company Number: US-BIOGENIDEC-2013BI085888

PATIENT
  Age: 47 Year
  Sex: Female

DRUGS (20)
  1. TECFIDERA [Suspect]
     Indication: MULTIPLE SCLEROSIS
     Route: 048
     Dates: start: 20130613
  2. TECFIDERA [Suspect]
     Indication: MULTIPLE SCLEROSIS
     Route: 048
  3. BACLOFEN [Concomitant]
  4. BORAGE OIL [Concomitant]
  5. BUPROPION HCL [Concomitant]
  6. CARBAMAZEPINE ER [Concomitant]
  7. CELEXA [Concomitant]
  8. CITALOPRAM HYDROBROMIDE [Concomitant]
  9. DIAZEPAM [Concomitant]
  10. ESTROGEL [Concomitant]
  11. FISH OIL [Concomitant]
  12. FLAXSEED OIL [Concomitant]
  13. HYDROCHLOROTHIAZIDE [Concomitant]
  14. HYDROCODONE ACETAMINOPHEN [Concomitant]
  15. IMITREX [Concomitant]
  16. OMEPRAZOLE [Concomitant]
  17. POTASSIUM CHLORIDE ER [Concomitant]
  18. TEGRETOL [Concomitant]
  19. VENTOLIN HFA [Concomitant]
  20. VITAMIN D3 [Concomitant]

REACTIONS (7)
  - Muscle spasms [Unknown]
  - Dyspnoea [Unknown]
  - Asthenia [Unknown]
  - Paraesthesia [Unknown]
  - Nausea [Unknown]
  - Vomiting [Unknown]
  - Flushing [Unknown]
